FAERS Safety Report 4790807-3 (Version None)
Quarter: 2005Q3

REPORT INFORMATION
  Report Type: 
  Country: None (occurrence: None)
  Receive Date: 20050914
  Receipt Date: 20040831
  Transmission Date: 20060218
  Serious: Yes (Death, Hospitalization)
  Sender: FDA-Public Use
  Company Number: 062-20785-04090154

PATIENT
  Age: 67 Year
  Sex: Male

DRUGS (3)
  1. THALIDOMIDE - PHARMION (THALIDOMIDE) (50 MILLIGRAM, CAPSULES) [Suspect]
     Indication: PLASMACYTOMA
     Dosage: SEE IMAGE
     Route: 048
     Dates: start: 20030822, end: 20040601
  2. THALIDOMIDE - PHARMION (THALIDOMIDE) (50 MILLIGRAM, CAPSULES) [Suspect]
     Indication: PLASMACYTOMA
     Dosage: SEE IMAGE
     Route: 048
     Dates: start: 20040601, end: 20040705
  3. BETA-SYMPATHOLYTICS [Concomitant]

REACTIONS (6)
  - DEATH [None]
  - DISEASE PROGRESSION [None]
  - HYPOAESTHESIA [None]
  - PARAESTHESIA [None]
  - RENAL FAILURE [None]
  - SENSORY DISTURBANCE [None]
